FAERS Safety Report 4764190-3 (Version None)
Quarter: 2005Q3

REPORT INFORMATION
  Report Type: 
  Country: None (occurrence: None)
  Receive Date: 20050902
  Receipt Date: 20050510
  Transmission Date: 20060218
  Serious: No
  Sender: FDA-Public Use
  Company Number: MPS1-10372

PATIENT
  Age: 29 Year
  Sex: Male
  Weight: 61.2356 kg

DRUGS (4)
  1. ALDURAZYME [Suspect]
     Dosage: 32.7 MG QWK IV
     Route: 042
     Dates: start: 20030630
  2. DIURETICS [Concomitant]
  3. BETA BLOCKERS [Concomitant]
  4. ACE INHIBITORS [Concomitant]

REACTIONS (1)
  - CARDIOMYOPATHY [None]
